FAERS Safety Report 18467961 (Version 2)
Quarter: 2020Q4

REPORT INFORMATION
  Report Type: Spontaneous
  Country: US (occurrence: US)
  Receive Date: 20201105
  Receipt Date: 20201110
  Transmission Date: 20210114
  Serious: Yes (Life-Threatening, Hospitalization, Other)
  Sender: FDA-Public Use
  Company Number: US-PFIZER INC-2020426256

PATIENT
  Age: 73 Year
  Sex: Female
  Weight: 68.95 kg

DRUGS (1)
  1. XELJANZ [Suspect]
     Active Substance: TOFACITINIB CITRATE
     Indication: RHEUMATOID ARTHRITIS
     Dosage: 5 MG, 2X/DAY
     Route: 048

REACTIONS (6)
  - Concussion [Recovered/Resolved with Sequelae]
  - Atrial fibrillation [Unknown]
  - Road traffic accident [Recovered/Resolved]
  - Sternal fracture [Recovered/Resolved]
  - Cardiac arrest [Recovered/Resolved]
  - Rib fracture [Recovered/Resolved]

NARRATIVE: CASE EVENT DATE: 201608
